FAERS Safety Report 8862053 (Version 3)
Quarter: 2013Q2

REPORT INFORMATION
  Report Type: Spontaneous
  Country: US (occurrence: US)
  Receive Date: 20121026
  Receipt Date: 20130515
  Transmission Date: 20140414
  Serious: Yes (Hospitalization, Congenital Anomaly, Other)
  Sender: FDA-Public Use
  Company Number: US-PFIZER INC-2012263733

PATIENT
  Sex: Male

DRUGS (25)
  1. ZOLOFT [Suspect]
     Indication: DEPRESSION
     Dosage: UNK
     Route: 064
     Dates: start: 20101127, end: 20101229
  2. SERTRALINE HCL [Suspect]
     Dosage: UNK
     Route: 064
  3. PRENATAL VITAMINS [Concomitant]
     Dosage: UNK
     Route: 064
  4. NYQUIL [Concomitant]
     Dosage: UNK
     Route: 064
  5. OXYCODONE [Concomitant]
     Dosage: UNK
     Route: 064
  6. PROMETHAZINE [Concomitant]
     Dosage: UNK
     Route: 064
  7. AMPICILLIN [Concomitant]
     Dosage: UNK
     Route: 064
  8. BUTALBITAL [Concomitant]
     Dosage: UNK
     Route: 064
  9. IBUPROFEN [Concomitant]
     Dosage: UNK
     Route: 064
  10. BUTORPHANOL [Concomitant]
     Dosage: UNK
     Route: 064
  11. HYDRALAZINE [Concomitant]
     Dosage: UNK
     Route: 064
  12. ALEVE [Concomitant]
     Dosage: UNK
     Route: 064
  13. FAMOTIDINE [Concomitant]
     Dosage: UNK
     Route: 064
  14. METHYLDOPA [Concomitant]
     Dosage: UNK
     Route: 064
  15. MORPHINE [Concomitant]
     Dosage: UNK
     Route: 064
  16. DILAUDID [Concomitant]
     Dosage: UNK
     Route: 064
  17. ZOFRAN [Concomitant]
     Dosage: UNK
     Route: 064
  18. ENOXAPARIN [Concomitant]
     Dosage: UNK
     Route: 064
  19. LACTATED RINGERS [Concomitant]
     Dosage: UNK
     Route: 064
  20. HYDROCODONE [Concomitant]
     Dosage: UNK
     Route: 064
  21. GLYBURIDE [Concomitant]
     Dosage: UNK
     Route: 064
  22. SUMATRIPTAN [Concomitant]
     Dosage: UNK
     Route: 064
  23. CEFAZOLIN [Concomitant]
     Dosage: UNK
     Route: 064
  24. SODIUM CHLORIDE [Concomitant]
     Dosage: UNK
     Route: 064
  25. OXYCODONE/APAP [Concomitant]
     Dosage: UNK
     Route: 064

REACTIONS (4)
  - Maternal exposure timing unspecified [Unknown]
  - Craniosynostosis [Unknown]
  - Congenital anomaly [Unknown]
  - Premature baby [Unknown]
